FAERS Safety Report 8893069 (Version 1)
Quarter: 2012Q4

REPORT INFORMATION
  Report Type: Spontaneous
  Country: US (occurrence: None)
  Receive Date: 20121106
  Receipt Date: 20121106
  Transmission Date: 20130627
  Serious: Yes (Other)
  Sender: FDA-Public Use
  Company Number: None

PATIENT
  Age: 64 Year
  Sex: Female
  Weight: 72.58 kg

DRUGS (1)
  1. AMITIZA [Suspect]
     Indication: CONSTIPATION
     Route: 048
     Dates: start: 20120905, end: 20121102

REACTIONS (11)
  - Headache [None]
  - Nausea [None]
  - Chest pain [None]
  - Muscle spasms [None]
  - Heart rate increased [None]
  - Malaise [None]
  - Diarrhoea [None]
  - Vomiting [None]
  - Weight increased [None]
  - Abdominal distension [None]
  - Flushing [None]
